FAERS Safety Report 25203170 (Version 1)
Quarter: 2025Q2

REPORT INFORMATION
  Report Type: Spontaneous
  Country: US (occurrence: US)
  Receive Date: 20250416
  Receipt Date: 20250416
  Transmission Date: 20250717
  Serious: Yes (Life-Threatening, Hospitalization, Other)
  Sender: GLENMARK
  Company Number: US-MLMSERVICE-20250327-PI459783-00190-1

PATIENT
  Age: 45 Year
  Sex: Female

DRUGS (2)
  1. LAMOTRIGINE [Suspect]
     Active Substance: LAMOTRIGINE
     Indication: Major depression
     Route: 065
  2. LAMOTRIGINE [Suspect]
     Active Substance: LAMOTRIGINE
     Indication: Bipolar disorder

REACTIONS (3)
  - Atrial standstill [Recovering/Resolving]
  - Eosinophilic myocarditis [Unknown]
  - Drug reaction with eosinophilia and systemic symptoms [Recovering/Resolving]
